FAERS Safety Report 8446002-X (Version None)
Quarter: 2012Q2

REPORT INFORMATION
  Report Type: 
  Country: None (occurrence: None)
  Receive Date: 20120618
  Receipt Date: 20120604
  Transmission Date: 20120825
  Serious: Yes (Other)
  Sender: FDA-Public Use
  Company Number: DE-ROCHE-1020819

PATIENT

DRUGS (3)
  1. TEMSIROLIMUS [Suspect]
     Indication: LYMPHOMA
     Dosage: ON DAY 2,8,15 AND ON 28 TH CYCLE
     Route: 065
  2. BENDAMUSTINE [Suspect]
     Indication: LYMPHOMA
     Dosage: FOR DAY 1 TO 2
     Route: 065
  3. MABTHERA [Suspect]
     Indication: LYMPHOMA
     Dosage: ON DAY 1
     Route: 065

REACTIONS (6)
  - HYPERTENSION [None]
  - HYPERGLYCAEMIA [None]
  - THROMBOCYTOPENIA [None]
  - BLOOD TRIGLYCERIDES INCREASED [None]
  - PNEUMONITIS [None]
  - LEUKOPENIA [None]
